FAERS Safety Report 7210913-3 (Version None)
Quarter: 2011Q1

REPORT INFORMATION
  Report Type: 
  Country: None (occurrence: None)
  Receive Date: 20110105
  Receipt Date: 20100916
  Transmission Date: 20110831
  Serious: Yes (Life-Threatening, Other)
  Sender: FDA-Public Use
  Company Number: FR-CELGENEUS-056-21880-08100261

PATIENT
  Age: 51 Year
  Sex: Female

DRUGS (10)
  1. EUPHON [Concomitant]
  2. SECTRAL [Concomitant]
     Route: 065
  3. CRESTOR [Concomitant]
     Route: 065
  4. REVLIMID [Suspect]
     Indication: MULTIPLE MYELOMA
     Route: 048
     Dates: start: 20071024, end: 20071211
  5. EFFERALGAN [Concomitant]
  6. ULTRA LEVURE [Concomitant]
  7. ADEPAL [Concomitant]
     Route: 065
  8. CIBLOR [Concomitant]
     Route: 065
  9. SOLUPRED [Concomitant]
     Route: 065
  10. DALFINOX [Concomitant]

REACTIONS (1)
  - INFUSION SITE THROMBOSIS [None]
